FAERS Safety Report 9901763 (Version 3)
Quarter: 2015Q3

REPORT INFORMATION
  Report Type: Spontaneous
  Country: US (occurrence: US)
  Receive Date: 20140217
  Receipt Date: 20150810
  Transmission Date: 20151125
  Serious: No
  Sender: FDA-Public Use
  Company Number: US-GILEAD-2011-0042301

PATIENT
  Age: 17 Year
  Sex: Female

DRUGS (5)
  1. LETAIRIS [Suspect]
     Active Substance: AMBRISENTAN
     Indication: HEART DISEASE CONGENITAL
  2. VELETRI [Concomitant]
     Active Substance: EPOPROSTENOL
  3. ADCIRCA [Concomitant]
     Active Substance: TADALAFIL
  4. LETAIRIS [Suspect]
     Active Substance: AMBRISENTAN
     Indication: PULMONARY HYPERTENSION
     Route: 048
     Dates: start: 20110524
  5. PROSTACYCLIN [Suspect]
     Active Substance: EPOPROSTENOL

REACTIONS (4)
  - Diarrhoea [Unknown]
  - Nausea [Unknown]
  - Asthenia [Unknown]
  - Headache [Unknown]
